FAERS Safety Report 21925913 (Version 2)
Quarter: 2023Q1

REPORT INFORMATION
  Report Type: Spontaneous
  Country: EG (occurrence: EG)
  Receive Date: 20230130
  Receipt Date: 20230213
  Transmission Date: 20230417
  Serious: Yes (Hospitalization, Other)
  Sender: FDA-Public Use
  Company Number: EG-MYLANLABS-2023M1009232

PATIENT
  Age: 65 Year
  Sex: Female
  Weight: 80 kg

DRUGS (2)
  1. ARIXTRA [Suspect]
     Active Substance: FONDAPARINUX SODIUM
     Indication: Deep vein thrombosis
     Dosage: 7.5 MILLIGRAM (7.5 MG FOR FIVE DAYS)
     Route: 058
  2. ARIXTRA [Suspect]
     Active Substance: FONDAPARINUX SODIUM
     Indication: Thrombosis prophylaxis

REACTIONS (2)
  - Pulmonary embolism [Recovered/Resolved]
  - Suspected product quality issue [Unknown]
